FAERS Safety Report 5923600-6 (Version None)
Quarter: 2008Q4

REPORT INFORMATION
  Report Type: 
  Country: None (occurrence: None)
  Receive Date: 20081020
  Receipt Date: 20081009
  Transmission Date: 20090506
  Serious: Yes (Disabling)
  Sender: FDA-Public Use
  Company Number: US-BAXTER-2008BH010904

PATIENT
  Age: 22 Year
  Sex: Male

DRUGS (9)
  1. VANCOMYCIN [Suspect]
     Indication: STAPHYLOCOCCAL INFECTION
     Route: 042
  2. VANCOMYCIN [Suspect]
     Route: 042
  3. TOBRAMYCIN [Suspect]
     Indication: CYSTIC FIBROSIS LUNG
     Route: 042
  4. ZOSYN [Suspect]
     Indication: CYSTIC FIBROSIS LUNG
     Route: 042
  5. TOBRAMYCIN [Suspect]
     Indication: CYSTIC FIBROSIS LUNG
     Route: 055
  6. ALBUTEROL [Concomitant]
     Indication: DRUG USE FOR UNKNOWN INDICATION
     Route: 055
  7. ULTRASE MT [Concomitant]
     Indication: DRUG USE FOR UNKNOWN INDICATION
     Route: 048
  8. ADEKS [Concomitant]
     Indication: DRUG USE FOR UNKNOWN INDICATION
     Route: 048
  9. PULMOZYME [Concomitant]
     Indication: DRUG USE FOR UNKNOWN INDICATION
     Route: 055

REACTIONS (1)
  - NEURALGIC AMYOTROPHY [None]
